FAERS Safety Report 7052520-1 (Version None)
Quarter: 2010Q4

REPORT INFORMATION
  Report Type: 
  Country: None (occurrence: None)
  Receive Date: 20101019
  Receipt Date: 20101012
  Transmission Date: 20110411
  Serious: Yes (Death, Hospitalization)
  Sender: FDA-Public Use
  Company Number: HU-ELI_LILLY_AND_COMPANY-HU201008005605

PATIENT
  Sex: Male
  Weight: 86 kg

DRUGS (13)
  1. NECITUMUMAB (11F8) (LY3012211) [Suspect]
     Indication: NON-SMALL CELL LUNG CANCER
     Dosage: 800 MG, OTHER
     Route: 042
     Dates: start: 20100707, end: 20100804
  2. PEMETREXED [Suspect]
     Indication: NON-SMALL CELL LUNG CANCER
     Dosage: 1000 MG, OTHER
     Route: 042
     Dates: start: 20100707, end: 20100728
  3. CISPLATIN [Suspect]
     Indication: NON-SMALL CELL LUNG CANCER
     Dosage: 150 MG, OTHER
     Route: 042
     Dates: start: 20100707, end: 20100728
  4. FENOTEROL W/IPRATROPIUM [Concomitant]
     Indication: BRONCHITIS
     Dates: start: 20090817
  5. ACETYLSALICYLIC ACID SRT [Concomitant]
     Indication: PROPHYLAXIS
     Dates: start: 20090201
  6. VALSARTAN [Concomitant]
     Indication: HYPERTONIA
     Dates: end: 20100804
  7. SIMVASTATIN [Concomitant]
     Indication: BLOOD CHOLESTEROL
  8. ALLOPURINOL [Concomitant]
     Indication: HYPERURICAEMIA
  9. RILMENIDINE [Concomitant]
     Indication: HYPERTONIA
     Dosage: 1 MG, UNK
     Dates: end: 20100804
  10. FUROSEMIDE [Concomitant]
     Indication: HYPERTONIA
     Dates: end: 20100804
  11. POTASSIUM CHLORIDE [Concomitant]
     Indication: HYPOKALAEMIA
     Dates: end: 20100804
  12. FERROUS SULFATE [Concomitant]
     Indication: ANAEMIA
     Dosage: 114 MG, UNK
  13. FOLIC ACID [Concomitant]
     Dosage: 0.8 MG, UNK

REACTIONS (1)
  - PULMONARY EMBOLISM [None]
